FAERS Safety Report 8154175-1 (Version None)
Quarter: 2012Q1

REPORT INFORMATION
  Report Type: 
  Country: None (occurrence: None)
  Receive Date: 20120221
  Receipt Date: 20120215
  Transmission Date: 20120608
  Serious: Yes (Other)
  Sender: FDA-Public Use
  Company Number: US-PFIZER INC-2012041430

PATIENT
  Sex: Female
  Weight: 76.19 kg

DRUGS (2)
  1. NEURONTIN [Suspect]
     Dosage: UNK
     Route: 048
     Dates: end: 20120201
  2. NEURONTIN [Suspect]
     Indication: NEURALGIA
     Dosage: 600 MG, 2X/DAY
     Route: 048
     Dates: start: 20010101

REACTIONS (14)
  - MULTIPLE FRACTURES [None]
  - HEAD INJURY [None]
  - BODY HEIGHT DECREASED [None]
  - MUSCULAR WEAKNESS [None]
  - OSTEOMALACIA [None]
  - CELLULITIS [None]
  - TIBIA FRACTURE [None]
  - VITAMIN D DECREASED [None]
  - FEAR [None]
  - HYPERTENSION [None]
  - VISUAL IMPAIRMENT [None]
  - FEMUR FRACTURE [None]
  - ANAEMIA [None]
  - DEPRESSED MOOD [None]
